FAERS Safety Report 20783455 (Version 1)
Quarter: 2022Q2

REPORT INFORMATION
  Report Type: Report from Study
  Country: MX (occurrence: MX)
  Receive Date: 20220504
  Receipt Date: 20220504
  Transmission Date: 20220720
  Serious: Yes (Hospitalization, Other)
  Sender: FDA-Public Use
  Company Number: MX-BRISTOL-MYERS SQUIBB COMPANY-2022-027445

PATIENT
  Age: 62 Year
  Weight: 77 kg

DRUGS (1)
  1. REVLIMID [Suspect]
     Active Substance: LENALIDOMIDE
     Indication: Plasma cell myeloma
     Dosage: FREQUENCY: 21/28 DAYS
     Dates: start: 20201124

REACTIONS (1)
  - Bone marrow disorder [Recovered/Resolved]

NARRATIVE: CASE EVENT DATE: 20220324
